FAERS Safety Report 9171258 (Version 1)
Quarter: 2013Q1

REPORT INFORMATION
  Report Type: Spontaneous
  Country: US (occurrence: None)
  Receive Date: 20130318
  Receipt Date: 20130318
  Transmission Date: 20140127
  Serious: Yes (Other)
  Sender: FDA-Public Use
  Company Number: None

PATIENT
  Age: 58 Year
  Sex: Male

DRUGS (1)
  1. ZELBORAF [Suspect]
     Route: 048
     Dates: start: 20121025

REACTIONS (3)
  - Fatigue [None]
  - Arthralgia [None]
  - Squamous cell carcinoma [None]
